FAERS Safety Report 15722466 (Version 2)
Quarter: 2018Q4

REPORT INFORMATION
  Report Type: Spontaneous
  Country: ES (occurrence: ES)
  Receive Date: 20181214
  Receipt Date: 20181214
  Transmission Date: 20190205
  Serious: Yes (Other)
  Sender: FDA-Public Use
  Company Number: PHHY2018ES180542

PATIENT
  Age: 62 Year
  Sex: Male

DRUGS (2)
  1. INFLIXIMAB [Suspect]
     Active Substance: INFLIXIMAB
     Indication: PYODERMA GANGRENOSUM
     Dosage: 5 MG/KG, (EVERY 8 WEEKS)
     Route: 065
  2. CICLOSPORIN [Suspect]
     Active Substance: CYCLOSPORINE
     Indication: PYODERMA GANGRENOSUM
     Dosage: 1 MG/KG, QD
     Route: 048

REACTIONS (4)
  - Pyoderma gangrenosum [Unknown]
  - Ulcer [Unknown]
  - Product use in unapproved indication [Unknown]
  - Condition aggravated [Unknown]
